FAERS Safety Report 16647775 (Version 4)
Quarter: 2019Q3

REPORT INFORMATION
  Report Type: Report from Study
  Country: US (occurrence: US)
  Receive Date: 20190730
  Receipt Date: 20190924
  Transmission Date: 20191004
  Serious: Yes (Hospitalization, Other)
  Sender: FDA-Public Use
  Company Number: US-INCYTE CORPORATION-2019IN007664

PATIENT

DRUGS (2)
  1. FLOMAX [Concomitant]
     Active Substance: TAMSULOSIN HYDROCHLORIDE
     Indication: PRODUCT USED FOR UNKNOWN INDICATION
     Route: 065
  2. JAKAFI [Suspect]
     Active Substance: RUXOLITINIB
     Indication: POLYCYTHAEMIA VERA
     Dosage: 10 MILLIGRAM, BID
     Route: 048
     Dates: start: 20181012

REACTIONS (12)
  - Intestinal obstruction [Unknown]
  - Abdominal distension [Unknown]
  - Urinary tract obstruction [Unknown]
  - Urinary tract infection [Unknown]
  - Heart rate increased [Unknown]
  - Vomiting [Unknown]
  - Malaise [Unknown]
  - Product dose omission [Unknown]
  - Prostatomegaly [Unknown]
  - Cystitis [Not Recovered/Not Resolved]
  - Pain [Unknown]
  - Pyrexia [Unknown]
